FAERS Safety Report 6088059 (Version 15)
Quarter: 2013Q2

REPORT INFORMATION
  Report Type: Spontaneous
  Country: US (occurrence: US)
  Receive Date: 20060721
  Receipt Date: 20130424
  Transmission Date: 20140414
  Serious: Yes (Death, Other)
  Sender: FDA-Public Use
  Company Number: PHEH2006US08858

PATIENT
  Age: 73 Year
  Sex: Male
  Weight: 99.77 kg

DRUGS (26)
  1. ZOMETA [Suspect]
     Indication: PROSTATE CANCER METASTATIC
     Dosage: 4 MG, EVERY 4-6 WEEKS
     Dates: start: 2002, end: 20050727
  2. ZOMETA [Suspect]
     Indication: BONE CANCER
  3. HORMONES AND RELATED AGENTS [Concomitant]
  4. ALBUTEROL SULFATE [Concomitant]
     Indication: ASTHMA
  5. DARVOCET-N [Concomitant]
     Dosage: 100 MG,
  6. ERYTHROMYCIN [Concomitant]
     Dates: start: 2005, end: 2005
  7. PREDNISONE [Concomitant]
     Indication: CHRONIC OBSTRUCTIVE PULMONARY DISEASE
  8. ATROVENT [Concomitant]
     Indication: ASTHMA
  9. HYDROCHLOROTHIAZIDE [Concomitant]
     Dosage: 25 MG, QD
  10. INFLUENZA VIRUS VACCINE [Concomitant]
     Dates: start: 2003
  11. OXYGEN THERAPY [Concomitant]
     Dosage: 2 L
  12. TAXOTERE [Concomitant]
     Indication: PROSTATE CANCER METASTATIC
     Dosage: 75 MG/M2,
     Dates: start: 20040929, end: 200607
  13. TAXOL + CARBOPLATIN [Concomitant]
     Indication: PROSTATE CANCER METASTATIC
  14. CASODEX [Concomitant]
  15. COSMOPEN [Concomitant]
  16. TYLENOL [Concomitant]
  17. ASA [Concomitant]
  18. FUROSEMIDE [Concomitant]
  19. OXYCODONE [Concomitant]
  20. ZOFRAN [Concomitant]
  21. COUMADIN [Concomitant]
     Dates: end: 20060202
  22. DIGOXIN [Concomitant]
  23. VIADUR [Concomitant]
  24. LOVENOX [Concomitant]
     Dates: start: 20060202
  25. LUPRON [Concomitant]
     Dosage: 30 MG, UNK
  26. HORMONES [Concomitant]

REACTIONS (64)
  - Neurogenic bladder [Unknown]
  - Hypotonic urinary bladder [Unknown]
  - Gingival erythema [Unknown]
  - Increased tendency to bruise [Unknown]
  - Haemorrhoids [Unknown]
  - Exposed bone in jaw [Unknown]
  - Blepharitis [Unknown]
  - Oedema peripheral [Unknown]
  - Osteoradionecrosis [Unknown]
  - Hypertension [Unknown]
  - Primary sequestrum [Unknown]
  - Malignant neoplasm progression [Fatal]
  - Prostatic specific antigen increased [Fatal]
  - Metastases to lung [Fatal]
  - Weight decreased [Fatal]
  - Pain [Fatal]
  - Cerebrovascular accident [Unknown]
  - Dizziness [Unknown]
  - Atelectasis [Unknown]
  - Metastases to bone [Unknown]
  - Bone pain [Unknown]
  - Hepatic lesion [Unknown]
  - Osteonecrosis of jaw [Unknown]
  - Injury [Unknown]
  - Anxiety [Unknown]
  - Bone disorder [Unknown]
  - Osteomyelitis [Recovering/Resolving]
  - Impaired healing [Unknown]
  - Mastication disorder [Unknown]
  - Dysgeusia [Unknown]
  - Haematuria [Unknown]
  - Breath odour [Unknown]
  - Left ventricular dysfunction [Unknown]
  - Upper respiratory tract infection [Unknown]
  - Ataxia [Unknown]
  - Angina pectoris [Unknown]
  - Chronic obstructive pulmonary disease [Unknown]
  - Bronchitis [Unknown]
  - Urinary retention [Recovered/Resolved]
  - Diverticulum [Unknown]
  - Arrhythmia supraventricular [Unknown]
  - Ventricular tachycardia [Unknown]
  - Ventricular hypertrophy [Unknown]
  - Cellulitis [Unknown]
  - Tricuspid valve incompetence [Unknown]
  - Oedema [Unknown]
  - Mitral valve incompetence [Unknown]
  - Bradycardia [Unknown]
  - Skin reaction [Unknown]
  - Tooth disorder [Recovered/Resolved with Sequelae]
  - Oral candidiasis [Unknown]
  - Asthenia [Unknown]
  - Stomatitis [Unknown]
  - Cheilitis [Unknown]
  - Tooth loss [Unknown]
  - Hypoxia [Unknown]
  - Aortic valve sclerosis [Unknown]
  - Fall [Unknown]
  - Hand fracture [Unknown]
  - Atrial fibrillation [Unknown]
  - Deep vein thrombosis [Unknown]
  - Hyponatraemia [Unknown]
  - Hypokalaemia [Unknown]
  - Obesity [Unknown]
